FAERS Safety Report 4343828-9 (Version None)
Quarter: 2004Q2

REPORT INFORMATION
  Report Type: 
  Country: None (occurrence: None)
  Receive Date: 20040419
  Receipt Date: 20040405
  Transmission Date: 20050107
  Serious: Yes (Other)
  Sender: FDA-Public Use
  Company Number: US-JNJFOC-20040400770

PATIENT
  Age: 73 Year
  Sex: Male

DRUGS (12)
  1. INFLIXIMAB (INFLIXIMAB, RECOMBINANT) LYOPHILIZED POWDER [Suspect]
     Indication: RHEUMATOID ARTHRITIS
     Dosage: 3 VIALS
     Dates: start: 20020514
  2. PRAVACHOL [Concomitant]
  3. FLOMAX [Concomitant]
  4. CELEBREX [Concomitant]
  5. ASPIRIN [Concomitant]
  6. ACTOS (PIOGLITAZONE) [Concomitant]
  7. ATENOLOL [Concomitant]
  8. METHOTREXATE [Concomitant]
  9. FOLIC ACID [Concomitant]
  10. DIGOXIN [Concomitant]
  11. ZOLOFT [Concomitant]
  12. TYLENOL [Concomitant]

REACTIONS (1)
  - SKIN CANCER [None]
